FAERS Safety Report 9904777 (Version 1)
Quarter: 2014Q1

REPORT INFORMATION
  Report Type: Spontaneous
  Country: CA (occurrence: CA)
  Receive Date: 20140218
  Receipt Date: 20140218
  Transmission Date: 20141002
  Serious: Yes (Hospitalization)
  Sender: FDA-Public Use
  Company Number: CA-ASTRAZENECA-2014SE10119

PATIENT
  Age: 64 Year
  Sex: Male

DRUGS (7)
  1. BRILINTA [Suspect]
     Route: 048
  2. AMLODIPINE [Concomitant]
  3. ATORVASTATIN CALCIUM [Concomitant]
  4. METOPROLOL [Concomitant]
  5. NITRO-DUR [Concomitant]
  6. PANTOPRAZOLE [Concomitant]
  7. VALSARTAN [Concomitant]

REACTIONS (3)
  - Anxiety [Recovering/Resolving]
  - Insomnia [Recovering/Resolving]
  - Dyspnoea [Recovering/Resolving]
